FAERS Safety Report 9355608 (Version 1)
Quarter: 2013Q2

REPORT INFORMATION
  Report Type: Spontaneous
  Country: JP (occurrence: JP)
  Receive Date: 20130619
  Receipt Date: 20130619
  Transmission Date: 20140414
  Serious: Yes (Other)
  Sender: FDA-Public Use
  Company Number: JP-ASTELLAS-2013JP006720

PATIENT
  Sex: Female

DRUGS (6)
  1. PROGRAF [Suspect]
     Indication: COLITIS ULCERATIVE
     Route: 065
  2. 5 ASA [Concomitant]
     Indication: COLITIS ULCERATIVE
     Route: 065
  3. CORTICOSTEROID NOS [Concomitant]
     Indication: COLITIS ULCERATIVE
     Route: 065
  4. AZATHIOPRINE [Concomitant]
     Indication: COLITIS ULCERATIVE
     Route: 065
  5. CICLOSPORIN [Concomitant]
     Indication: COLITIS ULCERATIVE
     Route: 065
  6. INFLIXIMAB [Concomitant]
     Indication: COLITIS ULCERATIVE
     Route: 065

REACTIONS (2)
  - Drug ineffective for unapproved indication [Unknown]
  - Colitis ulcerative [Unknown]
